FAERS Safety Report 10497042 (Version 2)
Quarter: 2014Q4

REPORT INFORMATION
  Report Type: Spontaneous
  Country: US (occurrence: US)
  Receive Date: 20141006
  Receipt Date: 20141006
  Transmission Date: 20150528
  Serious: No
  Sender: FDA-Public Use
  Company Number: US-DRREDDYS-USA/USA/13/0036722

PATIENT
  Sex: Female
  Weight: 70.37 kg

DRUGS (4)
  1. IBUPROFEN. [Concomitant]
     Active Substance: IBUPROFEN
     Indication: PRODUCT USED FOR UNKNOWN INDICATION
     Route: 065
  2. NAPROXEN SODIUM 220 MG [Concomitant]
     Active Substance: NAPROXEN SODIUM
     Indication: PRODUCT USED FOR UNKNOWN INDICATION
     Route: 065
  3. SUMATRIPTAN SUCCINATE TABLETS [Suspect]
     Active Substance: SUMATRIPTAN SUCCINATE
     Indication: MIGRAINE
     Dosage: FIRTS PILL ON 25 DEC 2013, ANOTHER PILL 2 HOURS LATER, ANOTHER PILL 6 HOURS LATER
     Route: 048
     Dates: start: 20131225
  4. SUMATRIPTAN SUCCINATE TABLETS [Suspect]
     Active Substance: SUMATRIPTAN SUCCINATE
     Route: 048
     Dates: start: 20131226

REACTIONS (2)
  - Drug ineffective [Unknown]
  - Product quality issue [Unknown]
